FAERS Safety Report 5726897-0 (Version None)
Quarter: 2008Q2

REPORT INFORMATION
  Report Type: 
  Country: None (occurrence: None)
  Receive Date: 20080502
  Receipt Date: 20080424
  Transmission Date: 20081010
  Serious: Yes (Other)
  Sender: FDA-Public Use
  Company Number: US-PFIZER INC-2008036673

PATIENT
  Sex: Male

DRUGS (1)
  1. ZYVOX [Suspect]
     Indication: OSTEOMYELITIS

REACTIONS (6)
  - BLOOD CREATININE ABNORMAL [None]
  - BLOOD UREA ABNORMAL [None]
  - EOSINOPHILIA [None]
  - LEUKOCYTOSIS [None]
  - NEPHRITIS INTERSTITIAL [None]
  - URINE ANALYSIS ABNORMAL [None]
